FAERS Safety Report 7279374-2 (Version None)
Quarter: 2011Q1

REPORT INFORMATION
  Report Type: 
  Country: None (occurrence: None)
  Receive Date: 20110208
  Receipt Date: 20100705
  Transmission Date: 20110831
  Serious: Yes (Death, Hospitalization, Other)
  Sender: FDA-Public Use
  Company Number: PHHY2010CN44671

PATIENT
  Age: 45 Year
  Sex: Male

DRUGS (5)
  1. MYCOPHENOLATE MOFETIL [Concomitant]
     Indication: IMMUNOSUPPRESSION
  2. CYCLOSPORINE [Suspect]
     Indication: TRANSPLANT
  3. AZATHIOPRINE [Concomitant]
     Dosage: 50 MG/D
  4. PREDNISONE [Concomitant]
     Dosage: 30 MG/D
  5. PREDNISONE [Concomitant]
     Indication: IMMUNOSUPPRESSION
     Dosage: 20 MG/ D
     Route: 048

REACTIONS (8)
  - NEPHROPATHY TOXIC [None]
  - RED BLOOD CELL ABNORMALITY [None]
  - TELANGIECTASIA [None]
  - KIDNEY TRANSPLANT REJECTION [None]
  - BLOOD CREATININE INCREASED [None]
  - HAEMOLYTIC URAEMIC SYNDROME [None]
  - CEREBROVASCULAR ACCIDENT [None]
  - ERECTILE DYSFUNCTION [None]
